FAERS Safety Report 22200397 (Version 2)
Quarter: 2023Q2

REPORT INFORMATION
  Report Type: Report from Study
  Country: US (occurrence: None)
  Receive Date: 20230412
  Receipt Date: 20230623
  Transmission Date: 20230722
  Serious: Yes (Other)
  Sender: FDA-Public Use
  Company Number: US-ROCHE-3320269

PATIENT
  Age: 24 Year
  Sex: Male
  Weight: 117.93 kg

DRUGS (2)
  1. EMICIZUMAB [Suspect]
     Active Substance: EMICIZUMAB
     Indication: Factor VIII deficiency
     Dosage: FORM STRENGTH : 150MG/ML
     Route: 058
     Dates: start: 20220803
  2. WHEY [Concomitant]
     Active Substance: WHEY
     Dosage: 24 G PROTEIN AND 2 G SUGARS
     Route: 048
     Dates: start: 20230225, end: 20230312

REACTIONS (1)
  - Haematuria [Recovered/Resolved]

NARRATIVE: CASE EVENT DATE: 20230308
